FAERS Safety Report 9493657 (Version 1)
Quarter: 2013Q3

REPORT INFORMATION
  Report Type: Spontaneous
  Country: US (occurrence: US)
  Receive Date: 20130902
  Receipt Date: 20130902
  Transmission Date: 20140515
  Serious: No
  Sender: FDA-Public Use
  Company Number: US-JNJFOC-20130814306

PATIENT
  Age: 57 Year
  Sex: Male
  Weight: 90.72 kg

DRUGS (4)
  1. SANDOZ FENTANYL TRANSDERMAL SYSTEM [Suspect]
     Indication: HERNIA PAIN
     Route: 062
     Dates: start: 201307
  2. SANDOZ FENTANYL TRANSDERMAL SYSTEM [Suspect]
     Indication: HERNIA PAIN
     Route: 062
     Dates: start: 201304, end: 201307
  3. LISINOPRIL [Concomitant]
     Indication: HYPERTENSION
     Route: 065
     Dates: start: 2003
  4. MELOXICAM [Concomitant]
     Indication: ARTHRITIS
     Route: 065

REACTIONS (6)
  - Wrong technique in drug usage process [Unknown]
  - Malaise [Not Recovered/Not Resolved]
  - Hypersomnia [Not Recovered/Not Resolved]
  - Pain [Recovered/Resolved]
  - Drug ineffective [Not Recovered/Not Resolved]
  - Product quality issue [Not Recovered/Not Resolved]
